FAERS Safety Report 17666797 (Version 2)
Quarter: 2020Q4

REPORT INFORMATION
  Report Type: Spontaneous
  Country: GB (occurrence: GB)
  Receive Date: 20200414
  Receipt Date: 20201215
  Transmission Date: 20210113
  Serious: Yes (Death)
  Sender: FDA-Public Use
  Company Number: GB-MYLANLABS-2020M1037633

PATIENT
  Age: 84 Year
  Sex: Male

DRUGS (19)
  1. DUORESP SPIROMAX [Concomitant]
     Active Substance: BUDESONIDE\FORMOTEROL
     Dosage: UNK
  2. BRALTUS [Concomitant]
     Active Substance: TIOTROPIUM BROMIDE
     Dosage: UNK
  3. LORAZEPAM. [Concomitant]
     Active Substance: LORAZEPAM
     Dosage: UNK
  4. FUROSEMIDE. [Concomitant]
     Active Substance: FUROSEMIDE
     Dosage: UNK
  5. SALBUTAMOL [Concomitant]
     Active Substance: ALBUTEROL
     Dosage: UNK
  6. PARACETAMOL [Concomitant]
     Active Substance: ACETAMINOPHEN
     Dosage: UNK
  7. DOXYCYCLINE. [Suspect]
     Active Substance: DOXYCYCLINE
     Indication: CHRONIC OBSTRUCTIVE PULMONARY DISEASE
     Dosage: 100 MILLIGRAM, QD
     Route: 048
     Dates: start: 20190812, end: 20190819
  8. RIVAROXABAN [Concomitant]
     Active Substance: RIVAROXABAN
     Dosage: UNK
  9. FERROUS SULFATE. [Concomitant]
     Active Substance: FERROUS SULFATE
     Dosage: UNK
  10. BISOPROLOL [Concomitant]
     Active Substance: BISOPROLOL
     Dosage: UNK
  11. ADCAL D3 [Concomitant]
     Active Substance: CALCIUM CARBONATE\CHOLECALCIFEROL
     Dosage: UNK
  12. AMOXICILLIN/CLAVULANIC ACID [Suspect]
     Active Substance: AMOXICILLIN\CLAVULANIC ACID
     Indication: URINARY TRACT INFECTION
     Dosage: 3 DOSAGE FORM, QD (500/125)
     Route: 048
     Dates: start: 20190925, end: 20191001
  13. NITROFURANTOIN. [Suspect]
     Active Substance: NITROFURANTOIN
     Indication: URINARY TRACT INFECTION
     Dosage: 200 MILLIGRAM, QD (HAD TWO COURSES ONE STARTING 25TH AND ANOTHER 5/12/19 )
     Route: 048
     Dates: start: 20191125, end: 20191130
  14. CARBOCISTEINE [Concomitant]
     Active Substance: CARBOCYSTEINE
     Dosage: UNK
  15. MIRTAZAPINE. [Concomitant]
     Active Substance: MIRTAZAPINE
     Dosage: UNK
  16. NITROFURANTOIN. [Suspect]
     Active Substance: NITROFURANTOIN
     Dosage: 200 MILLIGRAM, QD
     Route: 048
     Dates: start: 20191205
  17. OMEPRAZOLE. [Concomitant]
     Active Substance: OMEPRAZOLE
     Dosage: UNK
  18. FOLIC ACID. [Concomitant]
     Active Substance: FOLIC ACID
     Dosage: UNK
  19. CHEMYDUR [Concomitant]
     Active Substance: ISOSORBIDE MONONITRATE
     Dosage: UNK

REACTIONS (1)
  - Clostridium difficile infection [Fatal]

NARRATIVE: CASE EVENT DATE: 20191227
